FAERS Safety Report 6735167-3 (Version None)
Quarter: 2010Q2

REPORT INFORMATION
  Report Type: 
  Country: None (occurrence: None)
  Receive Date: 20100519
  Receipt Date: 20100519
  Transmission Date: 20101027
  Serious: No
  Sender: FDA-Public Use
  Company Number: None

PATIENT
  Age: 57 Year
  Sex: Female

DRUGS (3)
  1. CLOPIDOGREL [Suspect]
     Indication: ANGIOGRAM
     Dosage: 75 MG PO
     Route: 048
     Dates: start: 20100423
  2. CLOPIDOGREL [Suspect]
     Indication: POSTOPERATIVE CARE
     Dosage: 75 MG PO
     Route: 048
     Dates: start: 20100423
  3. CLOPIDOGREL [Suspect]
     Indication: STENT PLACEMENT
     Dosage: 75 MG PO
     Route: 048
     Dates: start: 20100423

REACTIONS (6)
  - DIZZINESS [None]
  - NAUSEA [None]
  - PAIN OF SKIN [None]
  - PHOTOPSIA [None]
  - PYREXIA [None]
  - VOMITING [None]
